FAERS Safety Report 5110150-2 (Version None)
Quarter: 2006Q3

REPORT INFORMATION
  Report Type: 
  Country: None (occurrence: None)
  Receive Date: 20060918
  Receipt Date: 20060905
  Transmission Date: 20061208
  Serious: Yes (Hospitalization)
  Sender: FDA-Public Use
  Company Number: HQWYE414307SEP06

PATIENT
  Age: 1 Day
  Sex: 0

DRUGS (1)
  1. EFFEXOR [Suspect]
     Indication: DEPRESSION
     Dosage: TRANSPLACENTAL
     Route: 064

REACTIONS (9)
  - APGAR SCORE LOW [None]
  - BACTERIA STOOL IDENTIFIED [None]
  - BLOOD PH DECREASED [None]
  - CAESAREAN SECTION [None]
  - DRUG EXPOSURE DURING PREGNANCY [None]
  - NECROTISING ENTEROCOLITIS NEONATAL [None]
  - NEONATAL RESPIRATORY FAILURE [None]
  - PLACENTA PRAEVIA [None]
  - PREMATURE BABY [None]
